FAERS Safety Report 10472207 (Version 1)
Quarter: 2014Q3

REPORT INFORMATION
  Report Type: Spontaneous
  Country: US (occurrence: None)
  Receive Date: 20140923
  Receipt Date: 20140923
  Transmission Date: 20150326
  Serious: No
  Sender: FDA-Public Use
  Company Number: None

PATIENT
  Age: 39 Year
  Sex: Female
  Weight: 75 kg

DRUGS (4)
  1. FERROUS SULFATE [Concomitant]
     Active Substance: FERROUS SULFATE\FERROUS SULFATE, DRIED
  2. BUPIVACAINE [Suspect]
     Active Substance: BUPIVACAINE
     Indication: SPINAL ANAESTHESIA
     Dosage: SPINAL ANESTHESIA
     Dates: start: 20140903, end: 20140903
  3. BUPIVACAINE [Suspect]
     Active Substance: BUPIVACAINE
     Indication: FEMALE STERILISATION
     Dosage: SPINAL ANESTHESIA
     Dates: start: 20140903, end: 20140903
  4. BUPIVACAINE [Suspect]
     Active Substance: BUPIVACAINE
     Indication: POSTPARTUM STATE
     Dosage: SPINAL ANESTHESIA
     Dates: start: 20140903, end: 20140903

REACTIONS (1)
  - Anaesthetic complication [None]

NARRATIVE: CASE EVENT DATE: 20140903
